FAERS Safety Report 10936361 (Version 1)
Quarter: 2015Q1

REPORT INFORMATION
  Report Type: Spontaneous
  Country: US (occurrence: None)
  Receive Date: 20150320
  Receipt Date: 20150320
  Transmission Date: 20150721
  Serious: Yes (Disabling, Other)
  Sender: FDA-Public Use
  Company Number: None

PATIENT
  Age: 51 Year
  Sex: Female
  Weight: 53.52 kg

DRUGS (1)
  1. LAMOTRIGINE. [Suspect]
     Active Substance: LAMOTRIGINE

REACTIONS (9)
  - Hypoaesthesia [None]
  - Tension headache [None]
  - Memory impairment [None]
  - Tinnitus [None]
  - Head discomfort [None]
  - Deafness unilateral [None]
  - Alopecia [None]
  - Weight decreased [None]
  - Aphasia [None]

NARRATIVE: CASE EVENT DATE: 20140412
